FAERS Safety Report 23616589 (Version 1)
Quarter: 2024Q1

REPORT INFORMATION
  Report Type: Report from Study
  Country: EG (occurrence: None)
  Receive Date: 20240311
  Receipt Date: 20240311
  Transmission Date: 20240410
  Serious: Yes (Other)
  Sender: FDA-Public Use
  Company Number: 2023A263559

PATIENT
  Sex: Female

DRUGS (1)
  1. LYNPARZA [Suspect]
     Active Substance: OLAPARIB
     Indication: Noninfective oophoritis
     Route: 048
     Dates: start: 20231025

REACTIONS (2)
  - Immunodeficiency [Unknown]
  - Anaemia [Unknown]
